FAERS Safety Report 4564047-7 (Version None)
Quarter: 2005Q1

REPORT INFORMATION
  Report Type: 
  Country: None (occurrence: None)
  Receive Date: 20050128
  Receipt Date: 20041122
  Transmission Date: 20050727
  Serious: No
  Sender: FDA-Public Use
  Company Number: US-BRISTOL-MYERS SQUIBB COMPANY-12773263

PATIENT
  Age: 9 Year
  Sex: Female
  Weight: 41 kg

DRUGS (2)
  1. CEFZIL [Suspect]
     Indication: PHARYNGITIS
     Route: 048
     Dates: start: 20041112, end: 20041120
  2. NOVOLOG [Concomitant]
     Route: 051

REACTIONS (1)
  - RASH PRURITIC [None]
